FAERS Safety Report 11912699 (Version 3)
Quarter: 2016Q1

REPORT INFORMATION
  Report Type: Spontaneous
  Country: US (occurrence: US)
  Receive Date: 20160113
  Receipt Date: 20160330
  Transmission Date: 20160526
  Serious: Yes (Hospitalization)
  Sender: FDA-Public Use
  Company Number: US-AXELLIA-000887

PATIENT
  Age: 64 Year
  Sex: Female

DRUGS (2)
  1. VANCOMYCIN [Suspect]
     Active Substance: VANCOMYCIN
     Indication: INFECTION
     Dosage: RECEIVED FOR APPROXIMATELY 3 DAYS UNTIL WOUND CULTURES SHOWED NORMAL FLORA.
  2. PIPERACILLIN/TAZOBACTAM [Concomitant]
     Indication: INFECTION
     Dosage: RECEIVED FOR APPROXIMATELY 3 DAYS

REACTIONS (3)
  - Linear IgA disease [Recovered/Resolved]
  - Abdominal pain [Unknown]
  - Hypotension [Unknown]
